FAERS Safety Report 9026634 (Version 1)
Quarter: 2013Q1

REPORT INFORMATION
  Report Type: Spontaneous
  Country: US (occurrence: None)
  Receive Date: 20130114
  Receipt Date: 20130114
  Transmission Date: 20140127
  Serious: Yes (Disabling)
  Sender: FDA-Public Use
  Company Number: None

PATIENT
  Age: 59 Year
  Sex: Female
  Weight: 50.8 kg

DRUGS (1)
  1. KENALOG [Suspect]
     Dates: start: 201205

REACTIONS (2)
  - Injection site scar [None]
  - Skin discolouration [None]
